FAERS Safety Report 12810256 (Version 1)
Quarter: 2016Q4

REPORT INFORMATION
  Report Type: Spontaneous
  Country: US (occurrence: US)
  Receive Date: 20161005
  Receipt Date: 20161005
  Transmission Date: 20170207
  Serious: No
  Sender: FDA-Public Use
  Company Number: US-BAYER-2016-190674

PATIENT
  Age: 88 Year
  Sex: Female
  Weight: 41.72 kg

DRUGS (4)
  1. GLEEVEC [Concomitant]
     Active Substance: IMATINIB MESYLATE
  2. MIRALAX [Suspect]
     Active Substance: POLYETHYLENE GLYCOL 3350
     Indication: GASTROINTESTINAL DISORDER
     Dosage: 1 DF, BID
     Dates: start: 20160928, end: 20160928
  3. BAYER LOW DOSE [Suspect]
     Active Substance: ASPIRIN
     Indication: PROPHYLAXIS
  4. MIRALAX [Suspect]
     Active Substance: POLYETHYLENE GLYCOL 3350
     Indication: GASTROINTESTINAL DISORDER
     Dosage: 1 DF, QD
     Route: 048
     Dates: start: 2014, end: 20160928

REACTIONS (6)
  - Abdominal pain upper [Recovered/Resolved]
  - Product use issue [None]
  - Drug ineffective [None]
  - Product use issue [None]
  - Product use issue [None]
  - Malaise [Recovered/Resolved]

NARRATIVE: CASE EVENT DATE: 2014
